FAERS Safety Report 15738932 (Version 1)
Quarter: 2018Q4

REPORT INFORMATION
  Report Type: Spontaneous
  Country: US (occurrence: US)
  Receive Date: 20181219
  Receipt Date: 20181219
  Transmission Date: 20190205
  Serious: No
  Sender: FDA-Public Use
  Company Number: US-PFIZER INC-2018520646

PATIENT
  Age: 66 Year
  Sex: Female

DRUGS (1)
  1. GENOTROPIN [Suspect]
     Active Substance: SOMATROPIN
     Dosage: 0.2 MG, DAILY
     Dates: start: 20170701

REACTIONS (10)
  - Fatigue [Unknown]
  - Haematocrit increased [Unknown]
  - Mean platelet volume increased [Unknown]
  - Blood glucose increased [Unknown]
  - Malaise [Unknown]
  - Blood cholesterol increased [Unknown]
  - Mean cell volume abnormal [Unknown]
  - Mean cell haemoglobin concentration decreased [Unknown]
  - Blood corticotrophin decreased [Unknown]
  - Blood parathyroid hormone increased [Unknown]

NARRATIVE: CASE EVENT DATE: 20180702
